FAERS Safety Report 8185066-8 (Version None)
Quarter: 2012Q1

REPORT INFORMATION
  Report Type: 
  Country: None (occurrence: None)
  Receive Date: 20120305
  Receipt Date: 20120228
  Transmission Date: 20120608
  Serious: Yes (Hospitalization, Other)
  Sender: FDA-Public Use
  Company Number: US-PFIZER INC-2012054018

PATIENT
  Sex: Male
  Weight: 95.238 kg

DRUGS (20)
  1. ACETAMINOPHEN AND OXYCODONE HCL [Concomitant]
     Indication: BACK PAIN
  2. OSTEO BI-FLEX [Concomitant]
     Indication: ARTHRALGIA
     Dosage: UNK, 2X/DAY
     Dates: start: 19930101
  3. LIPITOR [Concomitant]
     Indication: BLOOD CHOLESTEROL ABNORMAL
     Dosage: 40 MG, DAILY
     Dates: end: 20120101
  4. CELEBREX [Suspect]
     Indication: PAIN
  5. CARISOPRODOL [Concomitant]
     Indication: PAIN
  6. OSTEO BI-FLEX [Concomitant]
     Indication: PAIN
  7. LOVAZA [Concomitant]
     Indication: CARDIAC DISORDER
     Dosage: 1000 MG, 2X/DAY
  8. ACETYLSALICYLIC ACID [Concomitant]
     Indication: CARDIAC DISORDER
     Dosage: 162 MG (2 TABLETS OF 81MG), DAILY
  9. ZETIA [Concomitant]
     Indication: BLOOD CHOLESTEROL ABNORMAL
     Dosage: 10 MG, DAILY
  10. CELEBREX [Suspect]
     Indication: ARTHRALGIA
     Dosage: 200 MG, 2X/DAY (10-15 YEARS AGO)
     Route: 048
  11. CELEBREX [Suspect]
     Indication: BACK PAIN
     Dosage: 200 MG, DAILY (FIVE YEARS AGO)
     Route: 048
  12. RAMIPRIL [Concomitant]
     Indication: HYPERTENSION
     Dosage: 10 MG, DAILY
  13. ACETAMINOPHEN AND OXYCODONE HCL [Concomitant]
     Indication: PAIN
  14. CARISOPRODOL [Concomitant]
     Indication: BACK PAIN
  15. OSTEO BI-FLEX [Concomitant]
     Indication: BACK PAIN
  16. PLAVIX [Concomitant]
     Indication: ANTICOAGULANT THERAPY
     Dosage: 75 MG, DAILY
  17. CARISOPRODOL [Concomitant]
     Indication: ARTHRALGIA
     Dosage: UNK,3X/DAY
     Dates: start: 19930101
  18. METOPROLOL TARTRATE [Concomitant]
     Indication: HYPERTENSION
     Dosage: 25 MG, 2X/DAY
  19. SAW PALMETTO [Concomitant]
     Indication: PROSTATIC DISORDER
     Dosage: UNK, 2X/DAY
     Route: 048
  20. ACETAMINOPHEN AND OXYCODONE HCL [Concomitant]
     Indication: ARTHRALGIA
     Dosage: UNK, 3X/DAY
     Dates: start: 19930101

REACTIONS (2)
  - MYOCARDIAL INFARCTION [None]
  - CARDIAC DISORDER [None]
